FAERS Safety Report 8077643-X (Version None)
Quarter: 2012Q1

REPORT INFORMATION
  Report Type: 
  Country: None (occurrence: None)
  Receive Date: 20120127
  Receipt Date: 20120120
  Transmission Date: 20120608
  Serious: Yes (Other)
  Sender: FDA-Public Use
  Company Number: DE-B.I. PHARMACEUTICALS,INC./RIDGEFIELD-2011-DE-05881DE

PATIENT
  Age: 72 Year
  Sex: Male
  Weight: 78 kg

DRUGS (9)
  1. PRADAXA [Suspect]
     Dosage: 220 MG
  2. EBRANTIL [Concomitant]
  3. VALPROATE SODIUM [Concomitant]
  4. NEBRISO [Concomitant]
  5. EZETIMIBE [Concomitant]
  6. METHIO HEXAL [Concomitant]
  7. IRBESARTAN [Concomitant]
  8. RASILEZ [Concomitant]
  9. AMLODIPINE [Concomitant]

REACTIONS (1)
  - GAMMA-GLUTAMYLTRANSFERASE INCREASED [None]
